FAERS Safety Report 7978470-1 (Version None)
Quarter: 2011Q4

REPORT INFORMATION
  Report Type: 
  Country: None (occurrence: None)
  Receive Date: 20111214
  Receipt Date: 20111201
  Transmission Date: 20120403
  Serious: Yes (Disabling, Other)
  Sender: FDA-Public Use
  Company Number: BR-ELI_LILLY_AND_COMPANY-BR201110006763

PATIENT
  Sex: Female

DRUGS (5)
  1. ACETAMINOPHEN [Concomitant]
     Dosage: 500 MG, UNKNOWN
     Route: 065
  2. CLONAZEPAM [Concomitant]
     Dosage: UNK, UNKNOWN
     Route: 065
  3. CLONAZEPAM [Concomitant]
     Dosage: 40 GTT, UNKNOWN
     Route: 065
  4. CYMBALTA [Suspect]
     Indication: FIBROMYALGIA
     Dosage: 60 MG, QD
     Route: 048
  5. DEPAKENE [Concomitant]
     Dosage: UNK, UNKNOWN
     Route: 065

REACTIONS (5)
  - ASTHENIA [None]
  - SYSTEMIC LUPUS ERYTHEMATOSUS [None]
  - INSOMNIA [None]
  - PATHOLOGICAL FRACTURE [None]
  - PAIN [None]
